FAERS Safety Report 20299863 (Version 6)
Quarter: 2025Q2

REPORT INFORMATION
  Report Type: Spontaneous
  Country: US (occurrence: US)
  Receive Date: 20220105
  Receipt Date: 20250404
  Transmission Date: 20250716
  Serious: No
  Sender: BIOGEN
  Company Number: US-BIOGEN-2021BI01057417

PATIENT
  Sex: Female

DRUGS (2)
  1. VUMERITY [Suspect]
     Active Substance: DIROXIMEL FUMARATE
     Indication: Multiple sclerosis
     Dosage: MAINTENANCE DOSE
     Route: 050
     Dates: start: 20210722
  2. VUMERITY [Suspect]
     Active Substance: DIROXIMEL FUMARATE
     Dosage: STARTING DOSE
     Route: 050
     Dates: start: 20210715, end: 20210722

REACTIONS (5)
  - Product dose omission in error [Recovered/Resolved]
  - Dizziness [Not Recovered/Not Resolved]
  - Aphasia [Not Recovered/Not Resolved]
  - Multiple sclerosis [Unknown]
  - Flushing [Not Recovered/Not Resolved]
